FAERS Safety Report 25481786 (Version 2)
Quarter: 2025Q3

REPORT INFORMATION
  Report Type: Spontaneous
  Country: US (occurrence: US)
  Receive Date: 20250626
  Receipt Date: 20250707
  Transmission Date: 20251021
  Serious: No
  Sender: NOVARTIS
  Company Number: US-SANDOZ-SDZ2025US043739

PATIENT
  Sex: Female

DRUGS (3)
  1. XOLAIR [Suspect]
     Active Substance: OMALIZUMAB
     Indication: Chronic spontaneous urticaria
     Dosage: 1 DF, QMO
     Route: 065
     Dates: start: 20250212, end: 20250616
  2. CYCLOSPORINE [Suspect]
     Active Substance: CYCLOSPORINE
     Indication: Chronic spontaneous urticaria
     Dosage: 2 DOSAGE FORM, QD, 1 DF, BID
     Route: 065
     Dates: start: 20240623, end: 20250616
  3. PREDNISONE [Suspect]
     Active Substance: PREDNISONE
     Indication: Chronic spontaneous urticaria
     Dosage: 1 DF, QD ,QOD
     Route: 065
     Dates: start: 20230914, end: 20250616

REACTIONS (1)
  - Drug ineffective [Unknown]
